FAERS Safety Report 8616646-0 (Version None)
Quarter: 2012Q3

REPORT INFORMATION
  Report Type: 
  Country: None (occurrence: None)
  Receive Date: 20120823
  Receipt Date: 20120816
  Transmission Date: 20120928
  Serious: Yes (Hospitalization)
  Sender: FDA-Public Use
  Company Number: BR-009507513-1208BRA007509

PATIENT

DRUGS (3)
  1. RIBAVIRIN [Suspect]
     Indication: HEPATITIS
     Dosage: UNK, BID
     Route: 048
     Dates: start: 20120601
  2. VICTRELIS [Suspect]
     Indication: HEPATITIS
     Dosage: UNK, TID
     Route: 048
     Dates: start: 20120501, end: 20120601
  3. INTERFERON (UNSPECIFIED) [Concomitant]
     Indication: HEPATITIS
     Dosage: UNK, UNKNOWN
     Route: 065
     Dates: end: 20120601

REACTIONS (3)
  - PANIC ATTACK [None]
  - APPARENT DEATH [None]
  - DEPRESSION [None]
